FAERS Safety Report 9041053 (Version 1)
Quarter: 2013Q1

REPORT INFORMATION
  Report Type: Report from Study
  Country: US (occurrence: US)
  Receive Date: 20130129
  Receipt Date: 20130129
  Transmission Date: 20140127
  Serious: No
  Sender: FDA-Public Use
  Company Number: US-ABBOTT-12P-163-0900994-00

PATIENT
  Age: 59 Year
  Sex: Female

DRUGS (1)
  1. HUMIRA 40 MG/0.8 ML PEN [Suspect]
     Indication: RHEUMATOID ARTHRITIS
     Route: 050
     Dates: start: 200601, end: 201202

REACTIONS (4)
  - Fatigue [Unknown]
  - Somnolence [Unknown]
  - Sinusitis [Unknown]
  - Rheumatoid arthritis [Unknown]
